FAERS Safety Report 8339087-2 (Version None)
Quarter: 2012Q2

REPORT INFORMATION
  Report Type: 
  Country: None (occurrence: None)
  Receive Date: 20120507
  Receipt Date: 20120504
  Transmission Date: 20120825
  Serious: Yes (Other)
  Sender: FDA-Public Use
  Company Number: US-BAYER-2012-043733

PATIENT
  Age: 43 Year
  Sex: Female

DRUGS (1)
  1. BETASERON [Suspect]
     Dosage: UNK

REACTIONS (12)
  - PAIN [None]
  - DEPRESSION [None]
  - HAEMORRHAGE URINARY TRACT [None]
  - WEIGHT DECREASED [None]
  - MALAISE [None]
  - CONTUSION [None]
  - NAUSEA [None]
  - GAIT DISTURBANCE [None]
  - FEELING COLD [None]
  - INFLUENZA LIKE ILLNESS [None]
  - THYROID FUNCTION TEST ABNORMAL [None]
  - FEELING HOT [None]
